FAERS Safety Report 5367664-X (Version None)
Quarter: 2007Q2

REPORT INFORMATION
  Report Type: 
  Country: None (occurrence: None)
  Receive Date: 20070622
  Receipt Date: 20070111
  Transmission Date: 20071010
  Serious: No
  Sender: FDA-Public Use
  Company Number: US-ASTRAZENECA-2007UW00610

PATIENT
  Age: 54 Year
  Sex: Male
  Weight: 76.7 kg

DRUGS (4)
  1. PULMICORT [Suspect]
     Indication: ALLERGIC COUGH
     Route: 055
     Dates: start: 20070104, end: 20070106
  2. ZOCOR [Concomitant]
  3. HYZAAR [Concomitant]
  4. PROCARDIA [Concomitant]

REACTIONS (1)
  - AGEUSIA [None]
